FAERS Safety Report 8591818-2 (Version None)
Quarter: 2012Q3

REPORT INFORMATION
  Report Type: 
  Country: None (occurrence: None)
  Receive Date: 20120803
  Receipt Date: 20120803
  Transmission Date: 20120928
  Serious: Yes (Disabling)
  Sender: FDA-Public Use
  Company Number: None

PATIENT
  Age: 36 Year
  Sex: Male
  Weight: 74.8435 kg

DRUGS (1)
  1. LIPITOR [Suspect]
     Indication: BLOOD CHOLESTEROL INCREASED
     Dosage: 1 PER DAY PO
     Route: 048
     Dates: start: 20040601, end: 20120801

REACTIONS (4)
  - MUSCLE DISORDER [None]
  - NERVOUS SYSTEM DISORDER [None]
  - AMNESIA [None]
  - MOTOR DYSFUNCTION [None]
